FAERS Safety Report 8336198-2 (Version None)
Quarter: 2012Q2

REPORT INFORMATION
  Report Type: 
  Country: None (occurrence: None)
  Receive Date: 20120504
  Receipt Date: 20120424
  Transmission Date: 20120825
  Serious: Yes (Death)
  Sender: FDA-Public Use
  Company Number: US-SANOFI-AVENTIS-2012SA024790

PATIENT
  Age: 3 Year
  Sex: Female
  Weight: 10 kg

DRUGS (8)
  1. REMODULIN [Suspect]
     Route: 042
     Dates: start: 20090724, end: 20120401
  2. SILDENAFIL CITRATE [Concomitant]
  3. ALDACTONE [Concomitant]
  4. LASIX [Concomitant]
  5. ASPIRIN [Concomitant]
  6. PRIMACOR [Suspect]
     Dosage: 0.5MG/KG/MIN
     Route: 042
     Dates: start: 20100303, end: 20120401
  7. DIURIL [Concomitant]
  8. POTASSIUM CHLORIDE [Concomitant]

REACTIONS (4)
  - RESPIRATORY DISTRESS [None]
  - CARDIAC ARREST [None]
  - CARDIAC FAILURE [None]
  - TACHYPNOEA [None]
